FAERS Safety Report 9825312 (Version 1)
Quarter: 2014Q1

REPORT INFORMATION
  Report Type: Spontaneous
  Country: US (occurrence: None)
  Receive Date: 20140115
  Receipt Date: 20140115
  Transmission Date: 20141002
  Serious: Yes (Other)
  Sender: FDA-Public Use
  Company Number: None

PATIENT
  Age: 39 Year
  Sex: Male

DRUGS (1)
  1. SEROSTIM [Suspect]
     Indication: HIV INFECTION
     Route: 058
     Dates: start: 20120731, end: 20140114

REACTIONS (4)
  - Bacterial infection [None]
  - Syphilis [None]
  - Staphylococcal infection [None]
  - Product packaging issue [None]
